FAERS Safety Report 8799452 (Version 2)
Quarter: 2012Q4

REPORT INFORMATION
  Report Type: 
  Country: US (occurrence: US)
  Receive Date: 20120919
  Receipt Date: 20121221
  Transmission Date: 20130627
  Serious: Yes (Other)
  Sender: FDA-Public Use
  Company Number: US-BAYER-2012-096458

PATIENT
  Weight: 69.84 kg

DRUGS (22)
  1. BAYER GENUINE ASPIRIN ORIGINAL STRENGTH [Suspect]
     Indication: HEADACHE
     Dosage: 1 DF, QD
     Route: 048
  2. BAYER GENUINE ASPIRIN ORIGINAL STRENGTH [Suspect]
     Indication: MUSCLE ACHE
  3. PHILLIPS^ COLON HEALTH [Suspect]
     Dosage: 1 DF, BID
     Route: 048
  4. PHILLIPS^ COLON HEALTH [Suspect]
     Dosage: 100 mg, QD
  5. OMEPRAZOLE [Concomitant]
     Indication: INDIGESTION
     Dosage: UNK UNK, OM
  6. OMEPRAZOLE [Concomitant]
     Indication: INDIGESTION
     Dosage: 20 mg, QD
  7. CENTRUM SILVER [Concomitant]
     Dosage: UNK UNK, OM
     Dates: start: 1990
  8. SPIRONOLACTONE W/HYDROCHLOROTHIAZIDE [Concomitant]
     Indication: ANKLE SWELLING
     Dosage: UNK UNK, OM
  9. SPIRONOLACTONE W/HYDROCHLOROTHIAZIDE [Concomitant]
     Indication: ANKLE SWELLING
     Dosage: UNK, QD
  10. OMEGA-3 [Concomitant]
     Dosage: UNK UNK, OM
  11. OMEGA-3 [Concomitant]
     Dosage: UNK, QD
  12. SUPER B COMPLEX [Concomitant]
     Dosage: UNK UNK, OM
  13. SUPER B COMPLEX [Concomitant]
     Dosage: UNK, QD
  14. BIOTIN [Concomitant]
     Dosage: UNK UNK, OM
  15. BIOTIN [Concomitant]
     Dosage: 5000 ?g, QD
  16. CALTRATE [CALCIUM,VITAMIN D NOS] [Concomitant]
     Dosage: UNK UNK, OM
  17. CALTRATE [CALCIUM,VITAMIN D NOS] [Concomitant]
     Dosage: UNK, QD
  18. COLACE [Concomitant]
     Dosage: UNK UNK, BID
  19. COLACE [Concomitant]
     Dosage: 100 mg, QD
  20. METOPROLOL [Concomitant]
     Dosage: 12 mg, QD
  21. PRAVASTATIN SODIUM [Concomitant]
     Dosage: UNK UNK, QD
  22. METAMUCIL [Concomitant]
     Dosage: UNK UNK, QD

REACTIONS (2)
  - Loss of consciousness [None]
  - Scotoma [Not Recovered/Not Resolved]
